FAERS Safety Report 5900942-1 (Version None)
Quarter: 2008Q3

REPORT INFORMATION
  Report Type: 
  Country: None (occurrence: None)
  Receive Date: 20080929
  Receipt Date: 20080922
  Transmission Date: 20090109
  Serious: Yes (Other)
  Sender: FDA-Public Use
  Company Number: US-ASTRAZENECA-2008UW19868

PATIENT
  Age: 74 Year
  Sex: Female
  Weight: 76.2 kg

DRUGS (8)
  1. CRESTOR [Suspect]
     Indication: CARDIAC DISORDER
     Route: 048
  2. CRESTOR [Interacting]
     Route: 048
  3. HEART MEDICINE [Interacting]
  4. METOPROLOL TARTRATE [Concomitant]
  5. ISOSORBIDE MN [Concomitant]
  6. PLAVIX [Concomitant]
  7. EVISTA [Concomitant]
  8. ASPIRIN [Concomitant]

REACTIONS (4)
  - CARDIAC DISORDER [None]
  - DRUG INTERACTION [None]
  - STENT PLACEMENT [None]
  - ULCER HAEMORRHAGE [None]
